FAERS Safety Report 10161938 (Version 2)
Quarter: 2014Q4

REPORT INFORMATION
  Report Type: Spontaneous
  Country: US (occurrence: None)
  Receive Date: 20140507
  Receipt Date: 20141113
  Transmission Date: 20150528
  Serious: Yes (Hospitalization)
  Sender: FDA-Public Use
  Company Number: 2014-US-005113

PATIENT
  Age: 62 Year
  Sex: Female
  Weight: 68.5 kg

DRUGS (1)
  1. XYREM [Suspect]
     Active Substance: SODIUM OXYBATE
     Indication: NARCOLEPSY
     Route: 048
     Dates: start: 201311, end: 2013

REACTIONS (5)
  - Blood glucose increased [None]
  - Thyroidectomy [None]
  - Tonsillitis [None]
  - Weight increased [None]
  - Thyroid neoplasm [None]

NARRATIVE: CASE EVENT DATE: 2013
